FAERS Safety Report 7493873-X (Version None)
Quarter: 2011Q2

REPORT INFORMATION
  Report Type: 
  Country: None (occurrence: None)
  Receive Date: 20110513
  Receipt Date: 20110429
  Transmission Date: 20111010
  Serious: Yes (Hospitalization)
  Sender: FDA-Public Use
  Company Number: 2011MA005417

PATIENT
  Age: 63 Year
  Sex: Male

DRUGS (4)
  1. DICLOFENAC SODIUM [Suspect]
     Indication: ANALGESIC THERAPY
     Dosage: PO
     Route: 048
  2. LEFLUNOMIDE [Concomitant]
  3. METHOTREXATE [Concomitant]
  4. ACYCLOVIR [Suspect]
     Indication: HERPES ZOSTER
     Dosage: 10 MG/KG; IV
     Route: 042

REACTIONS (2)
  - BLOOD UREA INCREASED [None]
  - BLOOD CREATININE INCREASED [None]
